FAERS Safety Report 13550844 (Version 1)
Quarter: 2017Q2

REPORT INFORMATION
  Report Type: Spontaneous
  Country: SA (occurrence: SA)
  Receive Date: 20170516
  Receipt Date: 20170516
  Transmission Date: 20170830
  Serious: Yes (Death, Hospitalization, Other)
  Sender: FDA-Public Use
  Company Number: SA-JNJFOC-20170512561

PATIENT

DRUGS (12)
  1. METHOTREXATE. [Suspect]
     Active Substance: METHOTREXATE
     Indication: NON-HODGKIN^S LYMPHOMA
     Dosage: DOSE- 1000 MG/ M2/DAY (PROTOCOL A, B, C, D)
     Route: 065
  2. LEUCOVORIN. [Suspect]
     Active Substance: LEUCOVORIN
     Indication: NON-HODGKIN^S LYMPHOMA
     Dosage: UNSPECIFIED DOSE IN PROTOCOL B??DOSE-15 MG/ M2  ONCE 6 HOUR (PROTOCOL E)
     Route: 065
  3. CYCLOPHOSPHAMIDE. [Suspect]
     Active Substance: CYCLOPHOSPHAMIDE
     Indication: NON-HODGKIN^S LYMPHOMA
     Dosage: DOSE-750 MG/M2 (PROTOCOL A, B) 300MG/M2. DOSE/ ONCE 12 H FOR 6 DOSES (PROTOCOL C AND D)
     Route: 065
  4. PREDNISONE. [Suspect]
     Active Substance: PREDNISONE
     Indication: NON-HODGKIN^S LYMPHOMA
     Dosage: DOSE-2MG/ KG/ DAY (PROTOCOL A, B, C, D)??DOSE-60MG/ M2/ DAY (PROTOCOL E)
     Route: 065
  5. IFOSFAMIDE. [Suspect]
     Active Substance: IFOSFAMIDE
     Indication: NON-HODGKIN^S LYMPHOMA
     Dosage: DOSE-2000 MG/ M2/ DOSE (PROTOCOL C)
     Route: 065
  6. ETOPOSIDE. [Suspect]
     Active Substance: ETOPOSIDE
     Indication: NON-HODGKIN^S LYMPHOMA
     Dosage: DOSE-100 MG/ M2 / DOSE (PROTOCOL C)
     Route: 065
  7. VINCRISTINE [Suspect]
     Active Substance: VINCRISTINE
     Indication: NON-HODGKIN^S LYMPHOMA
     Dosage: DOSE-1.5 MG/M2 FOR PROTOCOL A, B, C, D??DOSE-2MG/M2 OR PROTOCOL E
     Route: 065
  8. DOXORUBICIN HYDROCHLORIDE. [Suspect]
     Active Substance: DOXORUBICIN HYDROCHLORIDE
     Indication: NON-HODGKIN^S LYMPHOMA
     Dosage: DOSE VARIES WITH THE PROTOCOL
     Route: 065
  9. METHOTREXATE. [Suspect]
     Active Substance: METHOTREXATE
     Indication: NON-HODGKIN^S LYMPHOMA
     Dosage: DOSE- 8000 MG/ M2/DAY OVER 4 HOURS(PROTOCOL E)
     Route: 042
  10. CYTARABINE. [Suspect]
     Active Substance: CYTARABINE
     Indication: NON-HODGKIN^S LYMPHOMA
     Dosage: DOSE-2000MG/ M2/ Q12H FOR 4 DOSES (PROTOCOL A, B, C, D)
     Route: 065
  11. CYTARABINE. [Suspect]
     Active Substance: CYTARABINE
     Indication: NON-HODGKIN^S LYMPHOMA
     Dosage: DOSE-50MG/ M2/ OVER 14 HOURS FOR 5 DOSES (PROTOCOL E)
     Route: 042
  12. ETOPOSIDE. [Suspect]
     Active Substance: ETOPOSIDE
     Indication: NON-HODGKIN^S LYMPHOMA
     Dosage: IN CONSOLIDATION-DOSE-200MG/M2 IV OVER 2 HOURS FOR 4 DOSES. IN MAINTENANCE-150MG/M2??(PROTOCOL E)
     Route: 042

REACTIONS (12)
  - Off label use [Unknown]
  - Febrile neutropenia [Unknown]
  - Tumour lysis syndrome [Unknown]
  - Bacterial infection [Unknown]
  - Pyrexia [Unknown]
  - Product use in unapproved indication [Unknown]
  - Viral infection [Unknown]
  - Mucosal inflammation [Unknown]
  - Fungal infection [Unknown]
  - Acute myeloid leukaemia [Fatal]
  - Toxicity to various agents [Fatal]
  - Septic shock [Unknown]
